FAERS Safety Report 25607136 (Version 1)
Quarter: 2025Q3

REPORT INFORMATION
  Report Type: Spontaneous
  Country: EU (occurrence: EU)
  Receive Date: 20250725
  Receipt Date: 20250725
  Transmission Date: 20251021
  Serious: Yes (Other)
  Sender: MSN LABORATORIES PRIVATE LIMITED
  Company Number: EU-MLMSERVICE-20250703-PI563550-00174-1

PATIENT

DRUGS (11)
  1. HALOPERIDOL [Suspect]
     Active Substance: HALOPERIDOL
     Indication: Hallucination, visual
     Dosage: AT EVENING
     Route: 065
  2. HALOPERIDOL [Suspect]
     Active Substance: HALOPERIDOL
     Indication: Insomnia
  3. HALOPERIDOL [Suspect]
     Active Substance: HALOPERIDOL
     Indication: Somnambulism
  4. HALOPERIDOL [Suspect]
     Active Substance: HALOPERIDOL
     Indication: Hallucination, visual
  5. HALOPERIDOL [Suspect]
     Active Substance: HALOPERIDOL
     Indication: Insomnia
  6. HALOPERIDOL [Suspect]
     Active Substance: HALOPERIDOL
     Indication: Somnambulism
  7. HALOPERIDOL [Suspect]
     Active Substance: HALOPERIDOL
     Indication: Delirium
  8. HALOPERIDOL [Suspect]
     Active Substance: HALOPERIDOL
     Indication: Hallucination, visual
  9. HALOPERIDOL [Suspect]
     Active Substance: HALOPERIDOL
     Indication: Insomnia
  10. HALOPERIDOL [Suspect]
     Active Substance: HALOPERIDOL
     Indication: Somnambulism
  11. POSACONAZOLE [Suspect]
     Active Substance: POSACONAZOLE
     Indication: Prophylaxis
     Dosage: 6 HOUR THROUGH NASOGASTRIC TUBE
     Route: 065

REACTIONS (3)
  - Hypoventilation [Unknown]
  - Respiratory acidosis [Unknown]
  - Drug interaction [Unknown]
